FAERS Safety Report 13720132 (Version 1)
Quarter: 2017Q3

REPORT INFORMATION
  Report Type: Other
  Country: DE (occurrence: DE)
  Receive Date: 20170706
  Receipt Date: 20170706
  Transmission Date: 20171127
  Serious: No
  Sender: FDA-Public Use
  Company Number: DE-LUPIN PHARMACEUTICALS INC.-E2B_00006530

PATIENT
  Sex: Female
  Weight: 78 kg

DRUGS (2)
  1. ATORVASTATIN [Suspect]
     Active Substance: ATORVASTATIN
     Indication: HYPERLIPIDAEMIA
     Dosage: 20 MG,UNK,UNKNOWN
     Route: 048
     Dates: start: 201306, end: 201307
  2. SIMVASTATIN. [Suspect]
     Active Substance: SIMVASTATIN
     Indication: HYPERLIPIDAEMIA
     Dosage: 20 MG,UNK,UNKNOWN
     Route: 048
     Dates: start: 201305, end: 201306

REACTIONS (2)
  - Muscle spasms [Recovered/Resolved]
  - Gait disturbance [Recovered/Resolved]
